FAERS Safety Report 5815159-9 (Version None)
Quarter: 2008Q3

REPORT INFORMATION
  Report Type: 
  Country: None (occurrence: None)
  Receive Date: 20080718
  Receipt Date: 20080708
  Transmission Date: 20090109
  Serious: Yes (Death, Hospitalization)
  Sender: FDA-Public Use
  Company Number: NSADSS2003010301

PATIENT
  Sex: Male
  Weight: 73.48 kg

DRUGS (11)
  1. REMICADE [Suspect]
     Route: 041
     Dates: start: 19990101
  2. REMICADE [Suspect]
     Indication: RHEUMATOID ARTHRITIS
     Route: 041
     Dates: start: 19990101
  3. CELEBREX [Concomitant]
  4. METOPROLOL TARTRATE [Concomitant]
  5. COUMADIN [Concomitant]
  6. PLAVIX [Concomitant]
  7. LIPITOR [Concomitant]
  8. EYE DROPS [Concomitant]
     Indication: GLAUCOMA
  9. MECLIZINE [Concomitant]
     Indication: DIZZINESS
  10. FUROSEMIDE [Concomitant]
  11. ASPIRIN [Concomitant]

REACTIONS (4)
  - CORONARY ARTERIAL STENT INSERTION [None]
  - FRACTURE [None]
  - HAEMOGLOBIN DECREASED [None]
  - TUBERCULOSIS [None]
